FAERS Safety Report 9137616 (Version 3)
Quarter: 2013Q4

REPORT INFORMATION
  Report Type: Spontaneous
  Country: US (occurrence: US)
  Receive Date: 20130304
  Receipt Date: 20131028
  Transmission Date: 20140711
  Serious: Yes (Life-Threatening, Hospitalization)
  Sender: FDA-Public Use
  Company Number: US-BAYER-2013-023762

PATIENT
  Age: 22 Year
  Sex: Female
  Weight: 54.42 kg

DRUGS (1)
  1. MIRENA [Suspect]
     Indication: CONTRACEPTION
     Dosage: 20 MCG/24HR, CONT
     Route: 015
     Dates: start: 20080122, end: 20120123

REACTIONS (11)
  - Uterine perforation [None]
  - Abdominal pain lower [None]
  - Device expulsion [None]
  - Injury [None]
  - General physical health deterioration [None]
  - Pregnancy with contraceptive device [None]
  - Infection [None]
  - Pain [None]
  - Anxiety [None]
  - Anhedonia [None]
  - Device dislocation [None]
